FAERS Safety Report 17487870 (Version 3)
Quarter: 2020Q1

REPORT INFORMATION
  Report Type: Spontaneous
  Country: AU (occurrence: AU)
  Receive Date: 20200303
  Receipt Date: 20200330
  Transmission Date: 20200409
  Serious: Yes (Hospitalization)
  Sender: FDA-Public Use
  Company Number: AU-CELGENEUS-AUS-20200209802

PATIENT
  Age: 3 Year
  Sex: Female
  Weight: 11.5 kg

DRUGS (7)
  1. AZACITIDINE. [Suspect]
     Active Substance: AZACITIDINE
     Indication: ACUTE MYELOID LEUKAEMIA REFRACTORY
     Route: 041
     Dates: start: 20200123, end: 20200129
  2. CETIRIZINE [Concomitant]
     Active Substance: CETIRIZINE HYDROCHLORIDE
     Indication: PRURITUS
     Route: 048
     Dates: start: 20200120
  3. RASBURICASE [Concomitant]
     Active Substance: RASBURICASE
     Indication: PROPHYLAXIS
     Dosage: 2 MILLIGRAM
     Route: 041
     Dates: start: 20200120, end: 20200124
  4. VENETOCLAX. [Concomitant]
     Active Substance: VENETOCLAX
     Dosage: 120 MILLIGRAM
     Route: 050
     Dates: start: 20200122, end: 20200205
  5. VENETOCLAX. [Concomitant]
     Active Substance: VENETOCLAX
     Dosage: 60 MILLIGRAM
     Route: 050
     Dates: start: 20200121, end: 20200121
  6. 5% DEXTROSE WITH 0.9% SODIUM CHLORIDE [Concomitant]
     Indication: PROPHYLAXIS
     Dosage: 3760 MILLILITER
     Route: 041
     Dates: start: 20200120, end: 20200124
  7. VENETOCLAX. [Concomitant]
     Active Substance: VENETOCLAX
     Indication: ACUTE MYELOID LEUKAEMIA REFRACTORY
     Dosage: 30 MILLIGRAM
     Route: 050
     Dates: start: 20200120, end: 20200120

REACTIONS (2)
  - Infection [Not Recovered/Not Resolved]
  - Neutropenia [Not Recovered/Not Resolved]

NARRATIVE: CASE EVENT DATE: 20200218
